FAERS Safety Report 11376703 (Version 4)
Quarter: 2017Q3

REPORT INFORMATION
  Report Type: Report from Study
  Country: GB (occurrence: GB)
  Receive Date: 20150813
  Receipt Date: 20170721
  Transmission Date: 20171127
  Serious: Yes (Death, Other)
  Sender: FDA-Public Use
  Company Number: GB-JNJFOC-20150807449

PATIENT
  Age: 59 Year
  Sex: Female

DRUGS (17)
  1. BACLOFEN. [Concomitant]
     Active Substance: BACLOFEN
     Route: 065
     Dates: start: 19920615
  2. SERETIDE [Concomitant]
     Active Substance: FLUTICASONE PROPIONATE\SALMETEROL XINAFOATE
     Route: 065
     Dates: start: 20080615
  3. CETRABEN [Concomitant]
     Active Substance: PARAFFIN
     Route: 065
     Dates: start: 20161123
  4. STELARA [Suspect]
     Active Substance: USTEKINUMAB
     Indication: PSORIASIS
     Route: 058
     Dates: start: 20121231, end: 20150701
  5. DIAZEPAM. [Concomitant]
     Active Substance: DIAZEPAM
     Route: 065
     Dates: start: 19920615
  6. LOSARTAN. [Concomitant]
     Active Substance: LOSARTAN
     Route: 065
     Dates: start: 19940615
  7. SIMVASTATIN. [Concomitant]
     Active Substance: SIMVASTATIN
     Route: 065
     Dates: start: 19940615
  8. MONOMAX [Concomitant]
     Route: 065
     Dates: start: 19960615
  9. THYROXINE [Concomitant]
     Active Substance: LEVOTHYROXINE
     Route: 065
     Dates: start: 19940615
  10. AMITRIPTYLINE [Concomitant]
     Active Substance: AMITRIPTYLINE
     Route: 065
     Dates: start: 19920615
  11. TRIMOVATE [Concomitant]
     Active Substance: CLOBETASONE BUTYRATE\NYSTATIN\OXYTETRACYCLINE CALCIUM
     Route: 065
     Dates: start: 20161123
  12. MEBEVERINE [Concomitant]
     Active Substance: MEBEVERINE
     Route: 065
     Dates: start: 20030615
  13. FUROSEMIDE. [Concomitant]
     Active Substance: FUROSEMIDE
     Route: 065
     Dates: start: 19940615
  14. ASPIRIN. [Concomitant]
     Active Substance: ASPIRIN
     Route: 065
     Dates: start: 19940615
  15. AMLODIPINE [Concomitant]
     Active Substance: AMLODIPINE BESYLATE
     Route: 065
     Dates: start: 19960615
  16. SALAMOL EASI-BREATHE [Concomitant]
     Active Substance: ALBUTEROL
     Route: 065
     Dates: start: 20080615
  17. SLOW K [Concomitant]
     Active Substance: POTASSIUM CHLORIDE
     Route: 065
     Dates: start: 20060615

REACTIONS (6)
  - Myocardial ischaemia [Fatal]
  - Diabetes mellitus [Fatal]
  - Hypertension [Fatal]
  - Cervix cancer metastatic [Fatal]
  - Small intestinal obstruction [Fatal]
  - Inappropriate schedule of drug administration [Unknown]

NARRATIVE: CASE EVENT DATE: 20121231
